FAERS Safety Report 10718807 (Version 1)
Quarter: 2015Q1

REPORT INFORMATION
  Report Type: Spontaneous
  Country: US (occurrence: US)
  Receive Date: 20150119
  Receipt Date: 20150119
  Transmission Date: 20150721
  Serious: No
  Sender: FDA-Public Use
  Company Number: US-UNITED THERAPEUTICS-UNT-2014-002004

PATIENT
  Age: 65 Year
  Sex: Female
  Weight: 68.27 kg

DRUGS (2)
  1. TRACLEER [Concomitant]
     Active Substance: BOSENTAN\BOSENTAN MONOHYDRATE
     Indication: PRODUCT USED FOR UNKNOWN INDICATION
  2. TYVASO [Suspect]
     Active Substance: TREPROSTINIL
     Indication: COR PULMONALE CHRONIC
     Dosage: 18-54 ?G, QID
     Dates: start: 20140604

REACTIONS (8)
  - Dry mouth [Unknown]
  - Dyspnoea [Unknown]
  - Chest discomfort [Recovering/Resolving]
  - Cough [Unknown]
  - Dizziness [Unknown]
  - Nausea [Recovered/Resolved]
  - Oropharyngeal pain [Not Recovered/Not Resolved]
  - Asthenia [Unknown]

NARRATIVE: CASE EVENT DATE: 2014
